FAERS Safety Report 20537109 (Version 1)
Quarter: 2022Q1

REPORT INFORMATION
  Report Type: Spontaneous
  Country: CN (occurrence: None)
  Receive Date: 20220302
  Receipt Date: 20220302
  Transmission Date: 20220424
  Serious: Yes (Other)
  Sender: FDA-Public Use
  Company Number: CN-ROCHE-3036048

PATIENT
  Age: 54 Year
  Sex: Female

DRUGS (22)
  1. MABTHERA [Suspect]
     Active Substance: RITUXIMAB
     Indication: B-cell lymphoma stage III
     Dosage: ON 26/FEB/2020 AND 19/MAR/2020, ON DAY 0
     Route: 065
  2. MABTHERA [Suspect]
     Active Substance: RITUXIMAB
     Dosage: ON DAY 0
     Route: 065
     Dates: start: 20200412, end: 20200710
  3. MABTHERA [Suspect]
     Active Substance: RITUXIMAB
     Dosage: RITUXIMAB + CHIDAMIDE + LENALIDOMIDE, ON DAY 0
     Route: 065
     Dates: start: 20220119
  4. MABTHERA [Suspect]
     Active Substance: RITUXIMAB
     Dosage: ON 08 AUG 2021, 23 AUG 2021 AND 10 SEP 2021, CHIDAMIDE COMBINED WITH GEMOX + DXM
     Route: 065
  5. MABTHERA [Suspect]
     Active Substance: RITUXIMAB
     Dosage: ON 27 SEP 2021, 22 OCT 2021, 14 NOV 2021 AND 15 DEC 2021, CHIDAMIDE COMBINED WITH AZACITIDINE
     Route: 065
  6. MABTHERA [Suspect]
     Active Substance: RITUXIMAB
     Dosage: FOR 6 CYCLES (DETAILS UNKNOWN)
     Route: 065
  7. CYCLOPHOSPHAMIDE [Concomitant]
     Active Substance: CYCLOPHOSPHAMIDE
     Indication: B-cell lymphoma stage III
     Dosage: ON 26 FEB 2020 AND 19 MAR 2020, ON DAY 1
  8. CYCLOPHOSPHAMIDE [Concomitant]
     Active Substance: CYCLOPHOSPHAMIDE
     Dosage: ON DAY 1
     Dates: start: 20200412, end: 20200710
  9. VINDESINE [Concomitant]
     Active Substance: VINDESINE
     Indication: B-cell lymphoma stage III
     Dosage: ON 26 FEB 2020 AND 19 MAR 2020, ON DAY 1
  10. VINDESINE [Concomitant]
     Active Substance: VINDESINE
     Dosage: ON DAY 1
     Dates: start: 20200412, end: 20200710
  11. DOXORUBICIN, LIPOSOMAL [Concomitant]
     Indication: B-cell lymphoma stage III
     Dosage: ON 26 FEB 2020 AND 19 MAR 2020, ON DAY 1
  12. DOXORUBICIN, LIPOSOMAL [Concomitant]
     Dosage: ON DAY 1
     Dates: start: 20200412, end: 20200710
  13. DEXAMETHASONE [Concomitant]
     Active Substance: DEXAMETHASONE
     Indication: B-cell lymphoma stage III
     Dosage: ON 26 FEB 2020 AND 19 MAR 2020, ON DAY 1-5
  14. DEXAMETHASONE [Concomitant]
     Active Substance: DEXAMETHASONE
     Dosage: ON DAY 1-5
     Dates: start: 20200412, end: 20200710
  15. DEXAMETHASONE [Concomitant]
     Active Substance: DEXAMETHASONE
     Dosage: ON DAY 1-4
     Dates: start: 20210714
  16. LENALIDOMIDE [Concomitant]
     Active Substance: LENALIDOMIDE
     Indication: B-cell lymphoma stage III
     Dosage: ON DAY 1-21
  17. LENALIDOMIDE [Concomitant]
     Active Substance: LENALIDOMIDE
     Dosage: RITUXIMAB + CHIDAMIDE + LENALIDOMIDE, ON DAY 1-21
     Dates: start: 20220119
  18. GEMCITABINE [Concomitant]
     Active Substance: GEMCITABINE
     Indication: B-cell lymphoma stage III
     Dosage: GDP REGIMEN, ON DAY 1, 5
     Dates: start: 20210714
  19. CISPLATIN [Concomitant]
     Active Substance: CISPLATIN
     Indication: B-cell lymphoma stage III
     Dosage: GDP REGIMEN, ON DAY 1-3
     Dates: start: 20210714
  20. TUCIDINOSTAT [Concomitant]
     Active Substance: TUCIDINOSTAT
     Indication: B-cell lymphoma stage III
     Dosage: RITUXIMAB + CHIDAMIDE + LENALIDOMIDE
     Dates: start: 20220119
  21. OXALIPLATIN [Concomitant]
     Active Substance: OXALIPLATIN
     Indication: B-cell lymphoma stage III
  22. AZACITIDINE [Concomitant]
     Active Substance: AZACITIDINE
     Indication: B-cell lymphoma stage III

REACTIONS (6)
  - Disease recurrence [Unknown]
  - Diarrhoea [Unknown]
  - Myelosuppression [Unknown]
  - Gastrointestinal haemorrhage [Recovering/Resolving]
  - Tonsillitis [Recovering/Resolving]
  - Off label use [Unknown]

NARRATIVE: CASE EVENT DATE: 20210922
